FAERS Safety Report 23650902 (Version 1)
Quarter: 2024Q1

REPORT INFORMATION
  Report Type: Spontaneous
  Country: US (occurrence: US)
  Receive Date: 20240320
  Receipt Date: 20240320
  Transmission Date: 20240410
  Serious: No
  Sender: FDA-Public Use
  Company Number: US-TWI PHARMACEUTICAL, INC-2024SCTW000027

PATIENT

DRUGS (1)
  1. DEXLANSOPRAZOLE [Suspect]
     Active Substance: DEXLANSOPRAZOLE
     Indication: Gastrooesophageal reflux disease
     Dosage: 60 MG, PRN
     Route: 048
     Dates: start: 20231027

REACTIONS (4)
  - Tongue discolouration [Not Recovered/Not Resolved]
  - Product solubility abnormal [Unknown]
  - Drug ineffective [Unknown]
  - Dysphagia [Not Recovered/Not Resolved]

NARRATIVE: CASE EVENT DATE: 20240211
